FAERS Safety Report 25222025 (Version 2)
Quarter: 2025Q2

REPORT INFORMATION
  Report Type: Spontaneous
  Country: RO (occurrence: RO)
  Receive Date: 20250421
  Receipt Date: 20250425
  Transmission Date: 20250717
  Serious: Yes (Other)
  Sender: MYLAN
  Company Number: RO-BAYER-2025A044929

PATIENT
  Age: 76 Year
  Sex: Female

DRUGS (6)
  1. APIXABAN [Interacting]
     Active Substance: APIXABAN
     Indication: Cerebrovascular accident prophylaxis
  2. APIXABAN [Interacting]
     Active Substance: APIXABAN
     Indication: Anticoagulant therapy
  3. ASPIRIN [Interacting]
     Active Substance: ASPIRIN
     Indication: Cerebrovascular accident prophylaxis
  4. ASPIRIN [Interacting]
     Active Substance: ASPIRIN
     Indication: Anticoagulant therapy
  5. HEPARIN CALCIUM [Interacting]
     Active Substance: HEPARIN CALCIUM
     Indication: Cerebrovascular accident prophylaxis
  6. HEPARIN CALCIUM [Interacting]
     Active Substance: HEPARIN CALCIUM
     Indication: Anticoagulant therapy

REACTIONS (6)
  - Aphasia [Recovered/Resolved]
  - Cerebral haematoma [Unknown]
  - Haematoma [Unknown]
  - Headache [Unknown]
  - Drug interaction [Unknown]
  - Contraindicated product administered [Unknown]
